FAERS Safety Report 8885856 (Version 1)
Quarter: 2012Q4

REPORT INFORMATION
  Report Type: Report from Study
  Country: IT (occurrence: IT)
  Receive Date: 20121105
  Receipt Date: 20121105
  Transmission Date: 20130627
  Serious: Yes (Hospitalization, Disabling)
  Sender: FDA-Public Use
  Company Number: PHHO2011IT12774

PATIENT
  Age: 84 Year
  Sex: Female
  Weight: 64 kg

DRUGS (5)
  1. ALISKIREN [Suspect]
     Indication: CARDIAC FAILURE ACUTE
     Route: 048
     Dates: start: 20110510, end: 20110724
  2. OLMESARTAN [Concomitant]
     Indication: HYPERTENSION
  3. METOPROLOL [Concomitant]
     Indication: CARDIAC FAILURE CHRONIC
  4. FUROSEMIDE [Concomitant]
     Indication: CARDIAC FAILURE CHRONIC
  5. ACENOCOUMAROL [Concomitant]
     Indication: ATRIAL FIBRILLATION

REACTIONS (2)
  - Ischaemic stroke [Recovering/Resolving]
  - Concomitant disease progression [Recovering/Resolving]
